FAERS Safety Report 23690409 (Version 1)
Quarter: 2024Q2

REPORT INFORMATION
  Report Type: Spontaneous
  Country: US (occurrence: US)
  Receive Date: 20240401
  Receipt Date: 20240401
  Transmission Date: 20240716
  Serious: Yes (Other)
  Sender: FDA-Public Use
  Company Number: US-APOTEX-2024AP004053

PATIENT
  Age: 21 Month

DRUGS (4)
  1. SIROLIMUS [Suspect]
     Active Substance: SIROLIMUS
     Indication: Pulmonary vein stenosis
     Dosage: 1 MILLIGRAM/SQ. METER, QD
     Route: 065
  2. SIROLIMUS [Suspect]
     Active Substance: SIROLIMUS
     Indication: Disease progression
     Dosage: 0.25 MILLIGRAM/SQ. METER, QD
     Route: 065
  3. IMATINIB [Suspect]
     Active Substance: IMATINIB
     Indication: Pulmonary vein stenosis
     Dosage: 340 MILLIGRAM/SQ. METER, QD
     Route: 065
  4. IMATINIB [Suspect]
     Active Substance: IMATINIB
     Indication: Disease progression

REACTIONS (9)
  - Thrombocytopenia [Recovering/Resolving]
  - Face oedema [Unknown]
  - Procedural haemorrhage [Recovering/Resolving]
  - Immunosuppressant drug level increased [Recovering/Resolving]
  - Pyrexia [Unknown]
  - Viral infection [Unknown]
  - Oedema peripheral [Unknown]
  - Hypertriglyceridaemia [Recovered/Resolved]
  - Hypercholesterolaemia [Recovered/Resolved]
